FAERS Safety Report 6668372-5 (Version None)
Quarter: 2010Q2

REPORT INFORMATION
  Report Type: 
  Country: None (occurrence: None)
  Receive Date: 20100406
  Receipt Date: 20081006
  Transmission Date: 20101027
  Serious: Yes (Other)
  Sender: FDA-Public Use
  Company Number: RU-BAYER-201020245GPV

PATIENT
  Age: 53 Year
  Sex: Female

DRUGS (36)
  1. FLUDARABINE PHOSPHATE [Suspect]
     Indication: NON-HODGKIN'S LYMPHOMA
     Dosage: 8 TABLETS, 6 CYCLE
     Route: 048
     Dates: start: 20080928, end: 20080930
  2. FLUDARABINE PHOSPHATE [Suspect]
     Dosage: 8 TABLETS, 5 CYCLE
     Route: 048
     Dates: start: 20080828, end: 20080830
  3. FLUDARABINE PHOSPHATE [Suspect]
     Dosage: 8 TABLETS, 4 CYCLE
     Route: 048
     Dates: start: 20080801, end: 20080803
  4. FLUDARABINE PHOSPHATE [Suspect]
     Dosage: 8 TABLETS, 3 CYCLE
     Route: 048
     Dates: start: 20080702, end: 20080704
  5. FLUDARABINE PHOSPHATE [Suspect]
     Dosage: 8 TABLETS, 1 CYCLE
     Route: 048
     Dates: start: 20080509, end: 20080511
  6. FLUDARABINE PHOSPHATE [Suspect]
     Dosage: 8 TABLETS, 2 CYCLE
     Route: 048
     Dates: start: 20080605, end: 20080607
  7. MABTHERA [Concomitant]
     Indication: NON-HODGKIN'S LYMPHOMA
     Route: 042
     Dates: start: 20080604, end: 20080604
  8. MABTHERA [Concomitant]
     Route: 042
     Dates: start: 20080927, end: 20080927
  9. MABTHERA [Concomitant]
     Route: 042
     Dates: start: 20080508, end: 20080508
  10. MABTHERA [Concomitant]
     Route: 042
     Dates: start: 20080731, end: 20080731
  11. MABTHERA [Concomitant]
     Route: 042
     Dates: start: 20080701, end: 20080701
  12. CYCLOPHOSPHAMIDE [Concomitant]
     Indication: NON-HODGKIN'S LYMPHOMA
     Route: 042
     Dates: start: 20080702, end: 20080704
  13. CYCLOPHOSPHAMIDE [Concomitant]
     Route: 042
     Dates: start: 20080509, end: 20080511
  14. CYCLOPHOSPHAMIDE [Concomitant]
     Route: 042
     Dates: start: 20080605, end: 20080607
  15. CYCLOPHOSPHAMIDE [Concomitant]
     Route: 042
     Dates: start: 20080928, end: 20080930
  16. CYCLOPHOSPHAMIDE [Concomitant]
     Route: 042
     Dates: start: 20080828, end: 20080830
  17. CYCLOPHOSPHAMIDE [Concomitant]
     Route: 042
     Dates: start: 20080801, end: 20080803
  18. BISEPTOL [Concomitant]
     Indication: INFECTION PROPHYLAXIS
     Route: 048
     Dates: start: 20080925, end: 20081006
  19. BISEPTOL [Concomitant]
     Route: 048
     Dates: start: 20080601, end: 20080706
  20. BISEPTOL [Concomitant]
     Route: 048
     Dates: start: 20080508, end: 20080515
  21. BISEPTOL [Concomitant]
     Route: 048
     Dates: start: 20080605, end: 20080608
  22. BISEPTOL [Concomitant]
     Route: 048
     Dates: start: 20080825, end: 20080901
  23. BISEPTOL [Concomitant]
     Route: 048
     Dates: start: 20080728, end: 20080804
  24. ALLOPURINOL [Concomitant]
     Indication: PROPHYLAXIS
     Dosage: TOTAL DAILY DOSE: 300 MG
     Route: 048
     Dates: start: 20080728, end: 20080804
  25. ALLOPURINOL [Concomitant]
     Dosage: TOTAL DAILY DOSE: 300 MG
     Route: 048
     Dates: start: 20080923, end: 20081003
  26. ALLOPURINOL [Concomitant]
     Dosage: TOTAL DAILY DOSE: 300 MG
     Route: 048
     Dates: start: 20080825, end: 20080901
  27. ALLOPURINOL [Concomitant]
     Dosage: TOTAL DAILY DOSE: 300 MG
     Route: 048
     Dates: start: 20080602, end: 20080609
  28. ALLOPURINOL [Concomitant]
     Dosage: TOTAL DAILY DOSE: 600 MG
     Route: 048
     Dates: start: 20080505, end: 20080515
  29. ALLOPURINOL [Concomitant]
     Dosage: TOTAL DAILY DOSE: 300 MG
     Route: 048
     Dates: start: 20080602, end: 20080609
  30. ALLOPURINOL [Concomitant]
     Dosage: TOTAL DAILY DOSE: 300 MG
     Route: 048
     Dates: start: 20080601, end: 20080706
  31. CERUCALI [Concomitant]
     Indication: PROPHYLAXIS OF NAUSEA AND VOMITING
     Dosage: 2 TAB
     Route: 048
     Dates: start: 20080508, end: 20080511
  32. CERUCALI [Concomitant]
     Dosage: 2 TAB
     Route: 048
     Dates: start: 20080702, end: 20080704
  33. GRISETIN [Concomitant]
     Indication: PROPHYLAXIS OF NAUSEA AND VOMITING
     Route: 048
     Dates: start: 20080605, end: 20080607
  34. EMISET [Concomitant]
     Indication: PROPHYLAXIS OF NAUSEA AND VOMITING
     Route: 048
     Dates: start: 20080828, end: 20080830
  35. PREDNISOLON [Concomitant]
     Indication: NON-HODGKIN'S LYMPHOMA
     Dosage: TOTAL DAILY DOSE: 40 MG
     Route: 048
     Dates: start: 20080926, end: 20080930
  36. CEFTZIABOL [Concomitant]
     Indication: INFECTION PROPHYLAXIS
     Dosage: TOTAL DAILY DOSE: 6 G
     Route: 042
     Dates: start: 20081008, end: 20081013

REACTIONS (3)
  - AGRANULOCYTOSIS [None]
  - HEPATITIS TOXIC [None]
  - LEUKOPENIA [None]
